FAERS Safety Report 7722462-4 (Version None)
Quarter: 2011Q3

REPORT INFORMATION
  Report Type: 
  Country: None (occurrence: None)
  Receive Date: 20110831
  Receipt Date: 20110816
  Transmission Date: 20111222
  Serious: Yes (Hospitalization, Other)
  Sender: FDA-Public Use
  Company Number: CN-BAYER-2011-074609

PATIENT
  Age: 30 Year
  Sex: Female
  Weight: 43 kg

DRUGS (2)
  1. ALCOHOL [Suspect]
     Dosage: 4 GLASSES OF BEER
  2. ACETAMINOPHEN [Suspect]
     Indication: PRODUCT USED FOR UNKNOWN INDICATION
     Dosage: 300 CRUSHED  TBL. WITH 500 MG
     Route: 048

REACTIONS (6)
  - METABOLIC ACIDOSIS [None]
  - SHOCK [None]
  - VOMITING [None]
  - SPEECH DISORDER [None]
  - SOMNOLENCE [None]
  - ABDOMINAL PAIN UPPER [None]
